FAERS Safety Report 12555999 (Version 2)
Quarter: 2016Q3

REPORT INFORMATION
  Report Type: Report from Study
  Country: US (occurrence: US)
  Receive Date: 20160714
  Receipt Date: 20160720
  Transmission Date: 20161109
  Serious: Yes (Hospitalization)
  Sender: FDA-Public Use
  Company Number: US-BRISTOL-MYERS SQUIBB COMPANY-BMS-2016-056405

PATIENT

DRUGS (8)
  1. BLINDED PLACEBO [Suspect]
     Active Substance: INVESTIGATIONAL PRODUCT
     Indication: PROPHYLAXIS
     Dosage: 645 MG, UNK
     Route: 042
     Dates: start: 20160608
  2. BLINDED ABATACEPT [Suspect]
     Active Substance: ABATACEPT
     Dosage: 665 MG, UNK
     Route: 042
     Dates: start: 20160707
  3. BLINDED PLACEBO [Suspect]
     Active Substance: INVESTIGATIONAL PRODUCT
     Dosage: 665 MG, UNK
     Route: 042
     Dates: start: 20160707
  4. BLINDED ABATACEPT [Suspect]
     Active Substance: ABATACEPT
     Dosage: 720 MG, UNK
     Route: 042
     Dates: start: 20160623
  5. BLINDED ABATACEPT [Suspect]
     Active Substance: ABATACEPT
     Dosage: 645 MG, UNK
     Route: 042
     Dates: start: 20160601
  6. BLINDED PLACEBO [Suspect]
     Active Substance: INVESTIGATIONAL PRODUCT
     Dosage: 645 MG, UNK
     Route: 042
     Dates: start: 20160601
  7. BLINDED PLACEBO [Suspect]
     Active Substance: INVESTIGATIONAL PRODUCT
     Dosage: 720 MG, UNK
     Route: 042
     Dates: start: 20160623
  8. BLINDED ABATACEPT [Suspect]
     Active Substance: ABATACEPT
     Indication: PROPHYLAXIS
     Dosage: 645 MG, UNK
     Route: 042
     Dates: start: 20160608

REACTIONS (1)
  - Decreased appetite [Not Recovered/Not Resolved]

NARRATIVE: CASE EVENT DATE: 20160701
